FAERS Safety Report 25720568 (Version 1)
Quarter: 2025Q3

REPORT INFORMATION
  Report Type: Report from Study
  Country: US (occurrence: US)
  Receive Date: 20250825
  Receipt Date: 20250825
  Transmission Date: 20251021
  Serious: Yes (Hospitalization)
  Sender: ACADIA PHARMACEUTICALS
  Company Number: US-ACADIA PHARMACEUTICALS INC.-ACA-2025-PIM-009507

PATIENT
  Age: 69 Year
  Sex: Male

DRUGS (7)
  1. NUPLAZID [Suspect]
     Active Substance: PIMAVANSERIN TARTRATE
     Indication: Parkinson^s disease
     Dosage: 34 MILLIGRAM, QD
     Route: 048
     Dates: start: 20230913, end: 20250816
  2. RYTARY [Concomitant]
     Active Substance: CARBIDOPA\LEVODOPA
  3. DHIVY [Concomitant]
     Active Substance: CARBIDOPA\LEVODOPA
  4. RASAGILINE [Concomitant]
     Active Substance: RASAGILINE
  5. PANTOPRAZOLE [Concomitant]
     Active Substance: PANTOPRAZOLE
  6. TRAZODONE [Concomitant]
     Active Substance: TRAZODONE HYDROCHLORIDE
  7. MIDODRINE [Concomitant]
     Active Substance: MIDODRINE

REACTIONS (1)
  - Fall [Not Recovered/Not Resolved]

NARRATIVE: CASE EVENT DATE: 20250816
